FAERS Safety Report 11218746 (Version 1)
Quarter: 2015Q2

REPORT INFORMATION
  Report Type: Spontaneous
  Country: US (occurrence: US)
  Receive Date: 20150625
  Receipt Date: 20150625
  Transmission Date: 20150821
  Serious: No
  Sender: FDA-Public Use
  Company Number: US-009507513-1505USA014847

PATIENT
  Age: 33 Year
  Weight: 51.25 kg

DRUGS (1)
  1. IMPLANON [Suspect]
     Active Substance: ETONOGESTREL
     Dosage: ONE ROD/ THREE YEARS IN ARM
     Route: 059
     Dates: start: 20120605, end: 20150520

REACTIONS (3)
  - Device breakage [Recovered/Resolved]
  - Implant site fibrosis [Unknown]
  - Device difficult to use [Recovered/Resolved]

NARRATIVE: CASE EVENT DATE: 20150520
